FAERS Safety Report 14788210 (Version 1)
Quarter: 2018Q2

REPORT INFORMATION
  Report Type: Report from Study
  Country: None (occurrence: US)
  Receive Date: 20180423
  Receipt Date: 20180423
  Transmission Date: 20180711
  Serious: Yes (Hospitalization)
  Sender: FDA-Public Use
  Company Number: US-ABBVIE-18K-163-2328118-00

PATIENT
  Sex: Male

DRUGS (1)
  1. HUMIRA [Suspect]
     Active Substance: ADALIMUMAB
     Indication: PRODUCT USED FOR UNKNOWN INDICATION
     Route: 058
     Dates: end: 201802

REACTIONS (5)
  - Sinusitis [Unknown]
  - Drug ineffective [Unknown]
  - Lymphadenopathy [Unknown]
  - Anxiety [Unknown]
  - Immunodeficiency [Unknown]
